FAERS Safety Report 25125633 (Version 1)
Quarter: 2025Q1

REPORT INFORMATION
  Report Type: Spontaneous
  Country: CN (occurrence: CN)
  Receive Date: 20250326
  Receipt Date: 20250326
  Transmission Date: 20250408
  Serious: Yes (Life-Threatening, Hospitalization)
  Sender: TEVA
  Company Number: CN-TEVA-VS-3313134

PATIENT
  Age: 39 Year
  Sex: Male
  Weight: 65 kg

DRUGS (10)
  1. BENDAMUSTINE [Suspect]
     Active Substance: BENDAMUSTINE
     Indication: Neoplasm
     Dosage: HYDROCHLORIDE
     Route: 041
     Dates: start: 20250219, end: 20250220
  2. ETOPOSIDE [Suspect]
     Active Substance: ETOPOSIDE
     Indication: Neoplasm
     Route: 041
     Dates: start: 20250220, end: 20250222
  3. ETOPOSIDE [Suspect]
     Active Substance: ETOPOSIDE
     Indication: Neoplasm
     Route: 041
     Dates: start: 20250220, end: 20250220
  4. CYTARABINE [Suspect]
     Active Substance: CYTARABINE
     Indication: Neoplasm
     Route: 041
     Dates: start: 20250220, end: 20250220
  5. SODIUM CHLORIDE [Concomitant]
     Active Substance: SODIUM CHLORIDE
     Indication: Product used for unknown indication
     Route: 041
     Dates: start: 20250219, end: 20250220
  6. SODIUM CHLORIDE [Concomitant]
     Active Substance: SODIUM CHLORIDE
     Indication: Product used for unknown indication
     Route: 041
     Dates: start: 20250220, end: 20250222
  7. SODIUM CHLORIDE [Concomitant]
     Active Substance: SODIUM CHLORIDE
     Indication: Product used for unknown indication
     Route: 041
     Dates: start: 20250225, end: 20250225
  8. DEXTROSE [Concomitant]
     Active Substance: DEXTROSE MONOHYDRATE
     Indication: Product used for unknown indication
     Route: 041
     Dates: start: 20250220, end: 20250220
  9. MELPHALAN HYDROCHLORIDE [Suspect]
     Active Substance: MELPHALAN HYDROCHLORIDE
     Indication: Neoplasm
     Route: 041
     Dates: start: 20250225, end: 20250225
  10. MELPHALAN HYDROCHLORIDE [Suspect]
     Active Substance: MELPHALAN HYDROCHLORIDE
     Indication: Neoplasm
     Route: 041
     Dates: start: 20250225, end: 20250225

REACTIONS (1)
  - Myelosuppression [Recovering/Resolving]

NARRATIVE: CASE EVENT DATE: 20250228
